FAERS Safety Report 20503553 (Version 1)
Quarter: 2022Q1

REPORT INFORMATION
  Report Type: Spontaneous
  Country: US (occurrence: None)
  Receive Date: 20220220
  Receipt Date: 20220220
  Transmission Date: 20220424
  Serious: Yes (Disabling)
  Sender: FDA-Public Use
  Company Number: None

PATIENT
  Age: 54 Year
  Sex: Female
  Weight: 60.75 kg

DRUGS (12)
  1. ELMIRON [Suspect]
     Active Substance: PENTOSAN POLYSULFATE SODIUM
     Indication: Cystitis interstitial
     Dosage: OTHER QUANTITY : 1 CAPSULE(S);?FREQUENCY : 3 TIMES A DAY;?
     Route: 048
     Dates: start: 20041201, end: 20181115
  2. LANSAZAPROLE [Concomitant]
  3. PRAVASTATIN [Concomitant]
     Active Substance: PRAVASTATIN
  4. CELEBREX [Concomitant]
     Active Substance: CELECOXIB
  5. HYDROXYZINE [Concomitant]
     Active Substance: HYDROXYZINE HYDROCHLORIDE
  6. HYDROCHLOROTHIAZIDE [Concomitant]
     Active Substance: HYDROCHLOROTHIAZIDE
  7. MULTIVITAMIN [Concomitant]
  8. VITAMIN D3 [Concomitant]
     Active Substance: CHOLECALCIFEROL
  9. CALCIUM [Concomitant]
     Active Substance: CALCIUM
  10. DOCUSATE SODIUM [Concomitant]
     Active Substance: DOCUSATE SODIUM
  11. MAGNESIUM [Concomitant]
  12. CYANOCOBALAMIN\DEXPANTHENOL\NIACINAMIDE\PYRIDOXINE HYDROCHLORIDE\RIBOF [Concomitant]
     Active Substance: CYANOCOBALAMIN\DEXPANTHENOL\NIACINAMIDE\PYRIDOXINE HYDROCHLORIDE\RIBOFLAVIN 5^-PHOSPHATE SODIUM\THIA

REACTIONS (1)
  - Maculopathy [None]

NARRATIVE: CASE EVENT DATE: 20180606
